FAERS Safety Report 21233110 (Version 1)
Quarter: 2022Q3

REPORT INFORMATION
  Report Type: Report from Study
  Country: US (occurrence: US)
  Receive Date: 20220819
  Receipt Date: 20220819
  Transmission Date: 20221026
  Serious: Yes (Other)
  Sender: FDA-Public Use
  Company Number: US-GLAXOSMITHKLINE-US2022115766

PATIENT

DRUGS (2)
  1. NIRAPARIB [Suspect]
     Active Substance: NIRAPARIB
     Indication: Ovarian cancer
     Dosage: 100 MG, QD
     Route: 048
     Dates: start: 20220627
  2. NIRAPARIB [Suspect]
     Active Substance: NIRAPARIB
     Dosage: 100 MG, QD
     Dates: start: 20220727

REACTIONS (15)
  - Malignant neoplasm progression [Unknown]
  - Metastases to central nervous system [Unknown]
  - Ovarian cancer metastatic [Unknown]
  - Infection [Unknown]
  - Productive cough [Unknown]
  - Constipation [Not Recovered/Not Resolved]
  - Nausea [Not Recovered/Not Resolved]
  - Cough [Not Recovered/Not Resolved]
  - Computerised tomogram abnormal [Unknown]
  - Balance disorder [Not Recovered/Not Resolved]
  - Hand-eye coordination impaired [Not Recovered/Not Resolved]
  - Fine motor skill dysfunction [Unknown]
  - Drug ineffective [Unknown]
  - Drug monitoring procedure not performed [Unknown]
  - Off label use [Unknown]

NARRATIVE: CASE EVENT DATE: 20220627
